FAERS Safety Report 6645699-4 (Version None)
Quarter: 2010Q1

REPORT INFORMATION
  Report Type: 
  Country: None (occurrence: None)
  Receive Date: 20100318
  Receipt Date: 20100318
  Transmission Date: 20100710
  Serious: No
  Sender: FDA-Public Use
  Company Number: None

PATIENT
  Age: 65 Year
  Sex: Female
  Weight: 58.9676 kg

DRUGS (1)
  1. FOSAMAX [Suspect]
     Indication: BONE DENSITY DECREASED
     Dosage: 1 PILL DAIALAY
     Dates: start: 20000901, end: 20080708

REACTIONS (3)
  - FEMUR FRACTURE [None]
  - FOOT FRACTURE [None]
  - STRESS FRACTURE [None]
